FAERS Safety Report 6566428-9 (Version None)
Quarter: 2010Q1

REPORT INFORMATION
  Report Type: 
  Country: None (occurrence: None)
  Receive Date: 20100202
  Receipt Date: 20100121
  Transmission Date: 20100710
  Serious: Yes (Hospitalization)
  Sender: FDA-Public Use
  Company Number: PHHY2009GB48629

PATIENT
  Sex: Male

DRUGS (6)
  1. CLOZARIL [Suspect]
     Indication: SCHIZOPHRENIA
     Dosage: UNK
     Dates: start: 20080704
  2. CLOZARIL [Suspect]
     Dosage: 250 MG, BID
     Route: 048
     Dates: start: 20090401
  3. CLOZARIL [Suspect]
     Dosage: 41 X 100 MG
  4. QUETIAPINE [Suspect]
     Indication: SCHIZOPHRENIA
     Dosage: 100 MG, NOCTE
     Route: 048
     Dates: start: 20090401
  5. CITALOPRAM [Suspect]
     Indication: DEPRESSION
     Dosage: 20 MG, MANE
     Route: 048
     Dates: start: 20090401
  6. PIRENZEPINE [Concomitant]
     Dosage: 100 MG
     Route: 048
     Dates: start: 20090401

REACTIONS (2)
  - OVERDOSE [None]
  - SOMNOLENCE [None]
